FAERS Safety Report 21487729 (Version 1)
Quarter: 2022Q4

REPORT INFORMATION
  Report Type: Spontaneous
  Country: CN (occurrence: CN)
  Receive Date: 20221020
  Receipt Date: 20221020
  Transmission Date: 20230113
  Serious: Yes (Hospitalization)
  Sender: FDA-Public Use
  Company Number: CN-009507513-2210CHN006871

PATIENT
  Age: 33 Year
  Sex: Female
  Weight: 43.5 kg

DRUGS (4)
  1. KEYTRUDA [Suspect]
     Active Substance: PEMBROLIZUMAB
     Indication: Metastatic malignant melanoma
     Dosage: 200 MG, Q3W
     Route: 041
     Dates: start: 202203, end: 20220901
  2. KEYTRUDA [Suspect]
     Active Substance: PEMBROLIZUMAB
     Dosage: 200 MG, Q3W
     Route: 041
     Dates: start: 20220721, end: 20220901
  3. IPILIMUMAB [Suspect]
     Active Substance: IPILIMUMAB
     Indication: Metastatic malignant melanoma
     Dosage: 1 MILLIGRAM/KILOGRAM, Q3W
     Route: 041
     Dates: start: 202203, end: 20220901
  4. IPILIMUMAB [Suspect]
     Active Substance: IPILIMUMAB
     Dosage: 1 MILLIGRAM/KILOGRAM, Q3W
     Route: 041
     Dates: start: 20220721, end: 20220901

REACTIONS (38)
  - Scratch [Unknown]
  - Skin erosion [Unknown]
  - Skin hyperpigmentation [Unknown]
  - Skin exfoliation [Unknown]
  - Vulvar erosion [Unknown]
  - Skin graft [Unknown]
  - Erythema [Unknown]
  - Pruritus [Unknown]
  - Pyrexia [Unknown]
  - Erythema [Unknown]
  - Pruritus [Unknown]
  - Pyrexia [Unknown]
  - Skin depigmentation [Unknown]
  - Oedema [Unknown]
  - Pulse abnormal [Unknown]
  - Blood pressure abnormal [Unknown]
  - Volume blood increased [Unknown]
  - Cardiac output increased [Unknown]
  - Polyuria [Unknown]
  - Vitamin D decreased [Unknown]
  - pH urine abnormal [Unknown]
  - C-reactive protein abnormal [Unknown]
  - Protein total abnormal [Unknown]
  - Blood albumin abnormal [Unknown]
  - Albumin globulin ratio abnormal [Unknown]
  - Blood urea abnormal [Unknown]
  - Blood creatinine abnormal [Unknown]
  - Blood creatine phosphokinase MB abnormal [Unknown]
  - Blood lactate dehydrogenase abnormal [Unknown]
  - Blood triglycerides abnormal [Unknown]
  - Blood immunoglobulin M abnormal [Unknown]
  - Gram stain positive [Unknown]
  - Blood calcium abnormal [Unknown]
  - Drug effect less than expected [Unknown]
  - Erythema [Unknown]
  - Pruritus [Unknown]
  - Dry skin [Unknown]
  - Blood calcium decreased [Unknown]

NARRATIVE: CASE EVENT DATE: 20220101
